FAERS Safety Report 25442875 (Version 2)
Quarter: 2025Q3

REPORT INFORMATION
  Report Type: Spontaneous
  Country: US (occurrence: US)
  Receive Date: 20250617
  Receipt Date: 20250815
  Transmission Date: 20251021
  Serious: Yes (Hospitalization)
  Sender: ROCHE
  Company Number: US-ROCHE-10000312909

PATIENT
  Sex: Female

DRUGS (4)
  1. ACTEMRA [Suspect]
     Active Substance: TOCILIZUMAB
     Indication: Rheumatoid arthritis
     Dosage: STRENGTH: 162MG/0.9ML
     Route: 058
     Dates: start: 202212
  2. ACTEMRA [Suspect]
     Active Substance: TOCILIZUMAB
  3. TYVASO DPI MAINT KIT PWD [Concomitant]
  4. WINREVAIR [Concomitant]
     Active Substance: SOTATERCEPT-CSRK

REACTIONS (5)
  - Dyspnoea [Unknown]
  - Throat irritation [Unknown]
  - Cough [Unknown]
  - Pruritus [Recovered/Resolved]
  - Pain in extremity [Recovered/Resolved]
